FAERS Safety Report 10665831 (Version 1)
Quarter: 2014Q4

REPORT INFORMATION
  Report Type: Report from Study
  Country: US (occurrence: US)
  Receive Date: 20141219
  Receipt Date: 20141219
  Transmission Date: 20150529
  Serious: Yes (Other)
  Sender: FDA-Public Use
  Company Number: US-PURDUE PHARMA-USA-2014-0119786

PATIENT
  Age: 59 Year
  Sex: Male

DRUGS (2)
  1. OXYCONTIN [Suspect]
     Active Substance: OXYCODONE HYDROCHLORIDE
     Indication: BACK PAIN
     Dosage: 80 MG, Q8H
     Route: 048
     Dates: start: 20141113
  2. OXYCONTIN [Suspect]
     Active Substance: OXYCODONE HYDROCHLORIDE
     Dosage: UNK
     Route: 048
     Dates: start: 2008

REACTIONS (4)
  - Chronic obstructive pulmonary disease [Not Recovered/Not Resolved]
  - Pain [Unknown]
  - Surgery [Unknown]
  - Stress [Unknown]

NARRATIVE: CASE EVENT DATE: 2010
